FAERS Safety Report 9241094 (Version 6)
Quarter: 2015Q4

REPORT INFORMATION
  Report Type: Report from Study
  Country: CA (occurrence: CA)
  Receive Date: 20130419
  Receipt Date: 20151224
  Transmission Date: 20160305
  Serious: Yes (Other)
  Sender: FDA-Public Use
  Company Number: CA-AMGEN-CANSP2013008286

PATIENT
  Age: 57 Year
  Sex: Female

DRUGS (8)
  1. XELJANZ [Concomitant]
     Active Substance: TOFACITINIB CITRATE
     Indication: RHEUMATOID ARTHRITIS
     Dosage: 5 MG, BID
     Route: 048
     Dates: start: 20150905
  2. ARAVA [Concomitant]
     Active Substance: LEFLUNOMIDE
     Dosage: UNK
  3. ENBREL [Suspect]
     Active Substance: ETANERCEPT
     Indication: RHEUMATOID ARTHRITIS
     Dosage: 50 MG, QWK
     Route: 065
     Dates: start: 20121108
  4. HUMIRA [Suspect]
     Active Substance: ADALIMUMAB
     Indication: PRODUCT USED FOR UNKNOWN INDICATION
     Dosage: UNK
     Route: 065
  5. RITUXAN [Suspect]
     Active Substance: RITUXIMAB
     Indication: PRODUCT USED FOR UNKNOWN INDICATION
     Dosage: UNK
     Route: 065
  6. ACTEMRA [Suspect]
     Active Substance: TOCILIZUMAB
     Indication: PRODUCT USED FOR UNKNOWN INDICATION
     Dosage: UNK
     Route: 065
  7. PREDNISONE. [Concomitant]
     Active Substance: PREDNISONE
     Dosage: UNK
  8. GOLD [Concomitant]
     Active Substance: GOLD
     Dosage: UNK

REACTIONS (19)
  - Osteoarthritis [Unknown]
  - Femur fracture [Unknown]
  - Swelling [Unknown]
  - Back pain [Unknown]
  - Injection site erythema [Unknown]
  - Pruritus generalised [Unknown]
  - No therapeutic response [Unknown]
  - Oedema peripheral [Unknown]
  - Rash [Unknown]
  - Hypersensitivity [Unknown]
  - Surgery [Unknown]
  - Dysphagia [Unknown]
  - Blood pressure increased [Unknown]
  - Contusion [Unknown]
  - Pain [Unknown]
  - Injection site bruising [Unknown]
  - Haemorrhage [Unknown]
  - Adverse drug reaction [Unknown]
  - Injection site hypersensitivity [Unknown]

NARRATIVE: CASE EVENT DATE: 201212
